FAERS Safety Report 5789138-4 (Version None)
Quarter: 2008Q2

REPORT INFORMATION
  Report Type: 
  Country: None (occurrence: None)
  Receive Date: 20080626
  Receipt Date: 20080623
  Transmission Date: 20081010
  Serious: Yes (Other)
  Sender: FDA-Public Use
  Company Number: GB-JNJFOC-20080605471

PATIENT
  Age: 77 Year
  Sex: Male
  Weight: 70.6 kg

DRUGS (6)
  1. IBUROFEN [Suspect]
     Indication: DRUG USE FOR UNKNOWN INDICATION
  2. CLOPIDOGREL [Interacting]
     Indication: ATRIAL FIBRILLATION
     Route: 048
  3. ENTACAPONE [Concomitant]
     Indication: PARKINSON'S DISEASE
     Route: 048
  4. MADOPAR [Concomitant]
     Route: 048
  5. MADOPAR [Concomitant]
     Indication: PARKINSON'S DISEASE
     Route: 048
  6. ROPINIROLE [Concomitant]
     Indication: PARKINSON'S DISEASE
     Route: 048

REACTIONS (3)
  - CONFUSIONAL STATE [None]
  - DRUG INTERACTION [None]
  - HALLUCINATION, VISUAL [None]
